FAERS Safety Report 26169078 (Version 2)
Quarter: 2025Q4

REPORT INFORMATION
  Report Type: Spontaneous
  Country: US (occurrence: US)
  Receive Date: 20251217
  Receipt Date: 20251218
  Transmission Date: 20260117
  Serious: No
  Sender: AMGEN
  Company Number: US-AMGEN-USASP2025244110

PATIENT
  Age: 72 Year
  Sex: Male

DRUGS (4)
  1. REPATHA [Suspect]
     Active Substance: EVOLOCUMAB
     Indication: Coronary artery disease
     Dosage: 140 MILLIGRAM, Q2WK
     Route: 058
  2. REPATHA [Suspect]
     Active Substance: EVOLOCUMAB
     Indication: Drug intolerance
  3. REPATHA [Suspect]
     Active Substance: EVOLOCUMAB
     Indication: Cardiac operation
  4. ZEPBOUND [Concomitant]
     Active Substance: TIRZEPATIDE
     Dosage: UNK

REACTIONS (2)
  - Injection site pain [Recovered/Resolved]
  - Wrong technique in product usage process [Unknown]

NARRATIVE: CASE EVENT DATE: 20251001
